FAERS Safety Report 7407802-8 (Version None)
Quarter: 2011Q3

REPORT INFORMATION
  Report Type: 
  Country: None (occurrence: None)
  Receive Date: 20110408
  Receipt Date: 20110408
  Transmission Date: 20111222
  Serious: No
  Sender: FDA-Public Use
  Company Number: None

PATIENT
  Age: 59 Year
  Sex: Male
  Weight: 88.4514 kg

DRUGS (1)
  1. SEPTOCAINE [Suspect]
     Indication: DENTAL CARE
     Dosage: 2 CARPULES 1.7 ML EACH DENTAL
     Route: 004
     Dates: start: 20110331, end: 20110331

REACTIONS (2)
  - HYPOAESTHESIA [None]
  - ANAESTHETIC COMPLICATION [None]
